FAERS Safety Report 24585559 (Version 1)
Quarter: 2024Q4

REPORT INFORMATION
  Report Type: Spontaneous
  Country: US (occurrence: US)
  Receive Date: 20241106
  Receipt Date: 20241106
  Transmission Date: 20250114
  Serious: No
  Sender: SUNOVION
  Company Number: US-SMPA-2024SPA004403AA

PATIENT

DRUGS (1)
  1. GEMTESA [Suspect]
     Active Substance: VIBEGRON
     Indication: Hypertonic bladder
     Dosage: USES SPARINGLY AND NOT EVERY DAY
     Route: 048

REACTIONS (2)
  - Pollakiuria [Unknown]
  - Inappropriate schedule of product administration [Unknown]
